FAERS Safety Report 12555531 (Version 1)
Quarter: 2016Q3

REPORT INFORMATION
  Report Type: Spontaneous
  Country: US (occurrence: None)
  Receive Date: 20160713
  Receipt Date: 20160713
  Transmission Date: 20161109
  Serious: Yes (Other)
  Sender: FDA-Public Use
  Company Number: None

PATIENT
  Age: 63 Year
  Sex: Female

DRUGS (5)
  1. ANASTRAZOLE [Concomitant]
     Active Substance: ANASTROZOLE
  2. FESOTERODINE [Concomitant]
     Active Substance: FESOTERODINE
  3. TYSABRI [Concomitant]
     Active Substance: NATALIZUMAB
  4. AMPYRA [Suspect]
     Active Substance: DALFAMPRIDINE
     Indication: MULTIPLE SCLEROSIS
     Route: 048
     Dates: start: 201511
  5. HCTZ [Concomitant]
     Active Substance: HYDROCHLOROTHIAZIDE

REACTIONS (1)
  - Urine leukocyte esterase positive [None]

NARRATIVE: CASE EVENT DATE: 20160706
